FAERS Safety Report 5112982-3 (Version None)
Quarter: 2006Q3

REPORT INFORMATION
  Report Type: 
  Country: None (occurrence: None)
  Receive Date: 20060922
  Receipt Date: 20060919
  Transmission Date: 20061208
  Serious: Yes (Death, Hospitalization)
  Sender: FDA-Public Use
  Company Number: PHNU2006DE03155

PATIENT
  Age: 81 Year
  Sex: Female
  Weight: 75 kg

DRUGS (1)
  1. LOCOL [Suspect]
     Indication: HYPERLIPIDAEMIA
     Dosage: 40 MG DAILY
     Route: 048
     Dates: start: 20060609, end: 20060809

REACTIONS (5)
  - BLOOD CREATINE PHOSPHOKINASE INCREASED [None]
  - MULTI-ORGAN FAILURE [None]
  - MYOGLOBINAEMIA [None]
  - RENAL FAILURE [None]
  - RHABDOMYOLYSIS [None]
